FAERS Safety Report 5716638-5 (Version None)
Quarter: 2008Q2

REPORT INFORMATION
  Report Type: 
  Country: None (occurrence: None)
  Receive Date: 20080424
  Receipt Date: 20080414
  Transmission Date: 20081010
  Serious: Yes (Hospitalization)
  Sender: FDA-Public Use
  Company Number: HQWYE956130JAN07

PATIENT
  Sex: Female
  Weight: 87.5 kg

DRUGS (18)
  1. TEMSIROLIMUS [Suspect]
     Indication: RENAL CANCER METASTATIC
     Route: 042
     Dates: start: 20070111, end: 20070118
  2. DILAUDID [Concomitant]
     Dosage: COMPUTERIZED AMBULATORY DRUG DELIVERY (CADD) 3 MG
     Route: 042
  3. COLACE [Concomitant]
     Indication: CONSTIPATION
     Route: 048
  4. LEVOTHYROXINE SODIUM [Concomitant]
     Indication: THYROID DISORDER
     Route: 048
  5. MEGACE [Concomitant]
     Dosage: UNSPECIFIED
     Route: 065
     Dates: end: 20070101
  6. MEGACE [Concomitant]
     Dosage: UNSPECIFIED
     Route: 065
     Dates: start: 20070101
  7. CELEXA [Concomitant]
     Indication: DEPRESSION
     Route: 048
  8. SENOKOT [Concomitant]
     Indication: CONSTIPATION
     Route: 048
  9. LORAZEPAM [Concomitant]
     Indication: ANXIETY
     Route: 048
  10. PROTONIX [Concomitant]
     Dosage: UNSPECIFIED
     Route: 065
  11. SEROQUEL [Concomitant]
     Indication: PSYCHOTIC DISORDER
     Route: 065
  12. FUROSEMIDE [Concomitant]
     Indication: ACUTE PULMONARY OEDEMA
     Route: 048
  13. ACETAMINOPHEN [Concomitant]
     Dosage: 2 TABS AS NEEDED EVERY 4 HOURS
     Route: 048
     Dates: start: 20061203
  14. ACETYLSALICYLIC ACID SRT [Concomitant]
     Route: 048
     Dates: start: 20061212
  15. COUMADIN [Concomitant]
     Indication: DEEP VEIN THROMBOSIS
     Route: 048
  16. COUMADIN [Concomitant]
     Indication: PROPHYLAXIS
  17. ZOFRAN [Concomitant]
     Indication: NAUSEA
     Route: 048
  18. LEVAQUIN [Concomitant]
     Route: 042
     Dates: start: 20070108

REACTIONS (2)
  - CYSTITIS [None]
  - DEEP VEIN THROMBOSIS [None]
